FAERS Safety Report 4399872-9 (Version None)
Quarter: 2004Q3

REPORT INFORMATION
  Report Type: 
  Country: None (occurrence: None)
  Receive Date: 20040714
  Receipt Date: 20040630
  Transmission Date: 20050211
  Serious: Yes (Hospitalization)
  Sender: FDA-Public Use
  Company Number: 2004221999JP

PATIENT
  Age: 12 Year
  Sex: Female
  Weight: 40 kg

DRUGS (13)
  1. DOXORUBICIN HYDROCHLORIDE [Suspect]
     Indication: NON-HODGKIN'S LYMPHOMA STAGE III
     Dosage: 32 MG, QD, IV
     Route: 042
     Dates: start: 20020119, end: 20020307
  2. CYCLOPHOSPHAMIDE [Suspect]
     Indication: NON-HODGKIN'S LYMPHOMA STAGE III
     Dosage: 1200 MG, QD, IV
     Route: 042
     Dates: start: 20020118, end: 20020304
  3. VINCRISTINE [Suspect]
     Indication: NON-HODGKIN'S LYMPHOMA STAGE III
     Dosage: 1.5 MG, QD, IV
     Route: 042
     Dates: start: 20020118, end: 20020311
  4. DELTA-CORTEF [Suspect]
     Indication: NON-HODGKIN'S LYMPHOMA STAGE III
     Dosage: 50 MG, QD, ORAL
     Route: 048
     Dates: start: 20020111, end: 20020220
  5. DEXAMETHASONE [Suspect]
     Indication: NON-HODGKIN'S LYMPHOMA STAGE III
     Dosage: 6.5 MG, QD, IV
     Route: 042
     Dates: start: 20020118, end: 20020124
  6. METHOTREXATE [Suspect]
     Indication: NON-HODGKIN'S LYMPHOMA STAGE III
     Dosage: 12 MG, QD, INTRAMENINGEAL
     Route: 029
     Dates: start: 20020118, end: 20020312
  7. CYTOSAR-U [Suspect]
     Indication: NON-HODGKIN'S LYMPHOMA STAGE III
     Dosage: 30 MG, QD, INTRAMENINGEAL
     Route: 029
     Dates: start: 20020118, end: 20020312
  8. SOLU-CORTEF (HYDROCORTISONE) PO [Suspect]
     Indication: NON-HODGKIN'S LYMPHOMA STAGE III
     Dosage: 25 MG, QD, INTRAMENINGEAL
     Route: 029
     Dates: start: 20020118, end: 20020312
  9. L-ASPARAGINASE (ASPARAGINASE) [Suspect]
     Indication: NON-HODGKIN'S LYMPHOMA STAGE III
     Dosage: 10000 DF, QD, IV
     Route: 042
     Dates: start: 20020126, end: 20020211
  10. BAKTAR [Concomitant]
  11. ALLOPURINOL TAB [Concomitant]
  12. POLYMYXIN B SULFATE [Concomitant]
  13. FUNGIZONE [Concomitant]

REACTIONS (9)
  - CEREBRAL INFARCTION [None]
  - CONVULSION [None]
  - HEART RATE INCREASED [None]
  - HYPERTENSION [None]
  - IMMUNODEFICIENCY [None]
  - JOINT DISLOCATION [None]
  - LEUKOENCEPHALOPATHY [None]
  - NUCLEAR MAGNETIC RESONANCE IMAGING BRAIN ABNORMAL [None]
  - WHITE BLOOD CELL COUNT DECREASED [None]
